FAERS Safety Report 5485580-X (Version None)
Quarter: 2007Q4

REPORT INFORMATION
  Report Type: 
  Country: None (occurrence: None)
  Receive Date: 20071011
  Receipt Date: 20071011
  Transmission Date: 20080405
  Serious: Yes (Hospitalization)
  Sender: FDA-Public Use
  Company Number: None

PATIENT
  Sex: Male
  Weight: 80.4 kg

DRUGS (2)
  1. FLUOROURACIL [Suspect]
     Dosage: 5292 MG
  2. ELOXATIN [Suspect]
     Dosage: 160 MG

REACTIONS (8)
  - BLOOD CULTURE POSITIVE [None]
  - DEEP VEIN THROMBOSIS [None]
  - ENTEROBACTER INFECTION [None]
  - GASTROINTESTINAL HAEMORRHAGE [None]
  - HYPOTENSION [None]
  - NEUTROPENIA [None]
  - POST PROCEDURAL HAEMORRHAGE [None]
  - PULMONARY EMBOLISM [None]
